FAERS Safety Report 6318696-6 (Version None)
Quarter: 2009Q3

REPORT INFORMATION
  Report Type: 
  Country: None (occurrence: None)
  Receive Date: 20090819
  Receipt Date: 20090812
  Transmission Date: 20100115
  Serious: Yes (Hospitalization)
  Sender: FDA-Public Use
  Company Number: SPV1-2009-01632

PATIENT
  Age: 74 Year
  Sex: Female

DRUGS (1)
  1. FOSRENOL [Suspect]
     Indication: HYPERPHOSPHATAEMIA
     Dosage: ORAL
     Route: 048
     Dates: start: 20090730

REACTIONS (3)
  - ASPIRATION [None]
  - COUGH [None]
  - DRUG ADMINISTRATION ERROR [None]
